FAERS Safety Report 7656217-6 (Version None)
Quarter: 2011Q3

REPORT INFORMATION
  Report Type: 
  Country: None (occurrence: None)
  Receive Date: 20110802
  Receipt Date: 20110718
  Transmission Date: 20111222
  Serious: Yes (Other)
  Sender: FDA-Public Use
  Company Number: FR-2011-1062

PATIENT
  Age: 55 Year
  Sex: Male

DRUGS (3)
  1. NAVELBINE [Suspect]
     Indication: LUNG NEOPLASM MALIGNANT
     Dates: start: 20101130, end: 20110421
  2. CISPLATIN [Suspect]
     Indication: LUNG NEOPLASM MALIGNANT
     Dates: start: 20101130, end: 20110421
  3. CODOLIPRANE [Concomitant]

REACTIONS (8)
  - PRODUCT QUALITY ISSUE [None]
  - NECK PAIN [None]
  - ANAEMIA [None]
  - OESOPHAGITIS ULCERATIVE [None]
  - DYSPHAGIA [None]
  - BACK PAIN [None]
  - RENAL FAILURE [None]
  - FUNGAL INFECTION [None]
